FAERS Safety Report 11852371 (Version 1)
Quarter: 2015Q4

REPORT INFORMATION
  Report Type: Spontaneous
  Country: AE (occurrence: AE)
  Receive Date: 20151218
  Receipt Date: 20151218
  Transmission Date: 20160305
  Serious: Yes (Hospitalization, Other)
  Sender: FDA-Public Use
  Company Number: AE-BAYER-2015-486591

PATIENT
  Age: 35 Year
  Sex: Female

DRUGS (8)
  1. CLOPIDOGREL [Concomitant]
     Active Substance: CLOPIDOGREL BISULFATE
  2. CLOPIDOGREL [Concomitant]
     Active Substance: CLOPIDOGREL BISULFATE
  3. INSULIN [Concomitant]
     Active Substance: INSULIN NOS
  4. LABETALOL [Concomitant]
     Active Substance: LABETALOL\LABETALOL HYDROCHLORIDE
     Indication: PRE-ECLAMPSIA
     Dosage: 200 MG, UNK
  5. LABETALOL [Concomitant]
     Active Substance: LABETALOL\LABETALOL HYDROCHLORIDE
     Indication: PRE-ECLAMPSIA
     Dosage: 200 MG, UNK
  6. NIFEDIPINE. [Suspect]
     Active Substance: NIFEDIPINE
     Indication: PRE-ECLAMPSIA
     Dosage: 30 MG, QD
     Route: 048
  7. NIFEDIPINE. [Suspect]
     Active Substance: NIFEDIPINE
     Indication: PRE-ECLAMPSIA
     Dosage: 30 MG, QD
     Route: 048
  8. INSULIN [Concomitant]
     Active Substance: INSULIN NOS

REACTIONS (3)
  - Premature delivery [None]
  - Cholestasis [None]
  - Maternal exposure during pregnancy [None]
